FAERS Safety Report 6302501-8 (Version None)
Quarter: 2009Q3

REPORT INFORMATION
  Report Type: 
  Country: None (occurrence: None)
  Receive Date: 20090810
  Receipt Date: 20090729
  Transmission Date: 20100115
  Serious: Yes (Other)
  Sender: FDA-Public Use
  Company Number: US-ROCHE-647543

PATIENT
  Age: 21 Year
  Sex: Female

DRUGS (2)
  1. OSELTAMIVIR [Suspect]
     Route: 065
  2. RIMANTADINE HYDROCHLORIDE [Suspect]
     Route: 065

REACTIONS (1)
  - ABORTION SPONTANEOUS [None]
